FAERS Safety Report 14162984 (Version 3)
Quarter: 2017Q4

REPORT INFORMATION
  Report Type: Spontaneous
  Country: JP (occurrence: JP)
  Receive Date: 20171106
  Receipt Date: 20171220
  Transmission Date: 20180321
  Serious: Yes (Hospitalization)
  Sender: FDA-Public Use
  Company Number: JP-PFIZER INC-2017467563

PATIENT
  Age: 35 Year
  Sex: Female
  Weight: 42.5 kg

DRUGS (2)
  1. AZULFIDINE EN-TABS [Suspect]
     Active Substance: SULFASALAZINE
     Indication: RHEUMATOID ARTHRITIS
     Dosage: 250 MG, 2X/DAY
     Route: 048
     Dates: start: 20170905, end: 20170917
  2. THIURAGYL [Concomitant]
     Active Substance: PROPYLTHIOURACIL
     Dosage: UNK
     Route: 048

REACTIONS (4)
  - Platelet count decreased [Recovering/Resolving]
  - Liver disorder [Recovering/Resolving]
  - Drug eruption [Recovering/Resolving]
  - White blood cell count decreased [Recovering/Resolving]

NARRATIVE: CASE EVENT DATE: 20170915
